FAERS Safety Report 24108922 (Version 1)
Quarter: 2024Q3

REPORT INFORMATION
  Report Type: Spontaneous
  Country: US (occurrence: US)
  Receive Date: 20240718
  Receipt Date: 20240718
  Transmission Date: 20241017
  Serious: Yes (Life-Threatening, Hospitalization)
  Sender: AUROBINDO
  Company Number: US-MLMSERVICE-20240710-PI125730-00029-1

PATIENT
  Age: 12 Year
  Sex: Female

DRUGS (6)
  1. ACETAMINOPHEN [Suspect]
     Active Substance: ACETAMINOPHEN
     Indication: Pain management
     Dosage: 48.5 MILLIGRAM/KILOGRAM, ONCE A DAY (EVERY 4?6 H WITH AN AVERAGE DOSING OF 48.5 MG/KG/DAY OVER THE 8
     Route: 065
  2. CEFEPIME [Concomitant]
     Active Substance: CEFEPIME HYDROCHLORIDE
     Indication: Peritonitis bacterial
     Dosage: UNK
     Route: 065
  3. HYDROCODONE [Concomitant]
     Active Substance: HYDROCODONE
     Indication: Pain management
     Dosage: UNK
     Route: 065
  4. MEROPENEM [Concomitant]
     Active Substance: MEROPENEM
     Indication: Peritonitis bacterial
     Dosage: UNK
     Route: 065
  5. METRONIDAZOLE [Concomitant]
     Active Substance: METRONIDAZOLE
     Indication: Peritonitis bacterial
     Dosage: UNK
     Route: 065
  6. VANCOMYCIN [Concomitant]
     Active Substance: VANCOMYCIN
     Indication: Peritonitis bacterial
     Dosage: UNK
     Route: 065

REACTIONS (2)
  - Metabolic acidosis [Recovering/Resolving]
  - Pyroglutamic acidosis [Recovered/Resolved]
